FAERS Safety Report 10256941 (Version 5)
Quarter: 2018Q2

REPORT INFORMATION
  Report Type: Report from Study
  Country: AU (occurrence: AU)
  Receive Date: 20140625
  Receipt Date: 20180517
  Transmission Date: 20180711
  Serious: Yes (Other)
  Sender: FDA-Public Use
  Company Number: AU-AMGEN-AUSCT2014046253

PATIENT
  Age: 51 Year
  Sex: Female

DRUGS (1)
  1. DENOSUMAB [Suspect]
     Active Substance: DENOSUMAB
     Indication: BREAST CANCER
     Dosage: 120 MG, Q3MO
     Route: 058
     Dates: start: 20120301, end: 20140227

REACTIONS (1)
  - Noninfective gingivitis [Recovered/Resolved]

NARRATIVE: CASE EVENT DATE: 20130821
